FAERS Safety Report 8144189-X (Version None)
Quarter: 2012Q1

REPORT INFORMATION
  Report Type: 
  Country: None (occurrence: None)
  Receive Date: 20120217
  Receipt Date: 20120210
  Transmission Date: 20120608
  Serious: Yes (Hospitalization)
  Sender: FDA-Public Use
  Company Number: ZA-B.I. PHARMACEUTICALS,INC./RIDGEFIELD-2012-BP-01985BP

PATIENT
  Sex: Female
  Weight: 3.4 kg

DRUGS (1)
  1. VIRAMUNE [Suspect]
     Indication: PROPHYLAXIS AGAINST HIV INFECTION
     Dosage: 1.5 ML
     Route: 048
     Dates: start: 20120106

REACTIONS (1)
  - ABDOMINAL DISTENSION [None]
